FAERS Safety Report 10481572 (Version 1)
Quarter: 2014Q3

REPORT INFORMATION
  Report Type: Spontaneous
  Country: NL (occurrence: NL)
  Receive Date: 20140929
  Receipt Date: 20140929
  Transmission Date: 20150326
  Serious: Yes (Life-Threatening, Hospitalization, Disabling)
  Sender: FDA-Public Use
  Company Number: NL-TEVA-510726ISR

PATIENT
  Age: 41 Year
  Sex: Male
  Weight: 85 kg

DRUGS (3)
  1. BLEOMYCIN [Suspect]
     Active Substance: BLEOMYCIN SULFATE
     Indication: TESTIS CANCER
     Dosage: EXTRA INFO: VOLGENS EXTRA INFORMATION: ACCORDING TO BEP CHEMOTHERAPY: FIVE DAYS CONSECUTIVELY
     Route: 042
     Dates: start: 20140818, end: 20140829
  2. CISPLATINE PDR V INFVLST 10MG [Suspect]
     Active Substance: CISPLATIN
     Indication: TESTIS CANCER
     Dosage: EXTRA INFORMATION: ACCORDING TO BEP CHEMOTHERAPY: FIVE DAYS CONSECUTIVELY: 5 DAGEN ACHTEREEN
     Route: 042
     Dates: start: 20140818, end: 20140829
  3. ETOPOSIDE INFOPL CONC 20MG/ML [Concomitant]
     Active Substance: ETOPOSIDE
     Indication: TESTIS CANCER
     Dosage: EXTRA INFO: VOLGENS EXTRA INFORMATION: ACCORDING TO BEP CHEMOTHERAPY: FIVE DAYS CONSECUTIVELY
     Route: 042
     Dates: start: 20140818

REACTIONS (2)
  - Ischaemic cerebral infarction [Not Recovered/Not Resolved]
  - Pulmonary embolism [Recovered/Resolved]

NARRATIVE: CASE EVENT DATE: 20140827
